FAERS Safety Report 9769063 (Version 1)
Quarter: 2013Q4

REPORT INFORMATION
  Report Type: Spontaneous
  Country: US (occurrence: None)
  Receive Date: 20131217
  Receipt Date: 20131217
  Transmission Date: 20140711
  Serious: Yes (Other)
  Sender: FDA-Public Use
  Company Number: None

PATIENT
  Age: 19 Year
  Sex: Female
  Weight: 58.97 kg

DRUGS (1)
  1. VYVANSE [Suspect]
     Indication: ATTENTION DEFICIT/HYPERACTIVITY DISORDER
     Route: 048
     Dates: start: 20081201, end: 20131216

REACTIONS (7)
  - Product quality issue [None]
  - Mood swings [None]
  - Attention deficit/hyperactivity disorder [None]
  - Disturbance in attention [None]
  - Confusional state [None]
  - Depression [None]
  - Insomnia [None]
